FAERS Safety Report 24220246 (Version 3)
Quarter: 2024Q3

REPORT INFORMATION
  Report Type: Report from Study
  Country: US (occurrence: US)
  Receive Date: 20240817
  Receipt Date: 20240926
  Transmission Date: 20241017
  Serious: Yes (Other)
  Sender: NOVARTIS
  Company Number: US-002147023-NVSC2024US163558

PATIENT
  Age: 67 Year
  Sex: Male

DRUGS (2)
  1. KESIMPTA [Suspect]
     Active Substance: OFATUMUMAB
     Indication: Relapsing multiple sclerosis
     Dosage: 20 MG, QMO
     Route: 058
     Dates: start: 20240806
  2. METFORMIN [Concomitant]
     Active Substance: METFORMIN HYDROCHLORIDE
     Indication: Diabetes mellitus
     Dosage: UNK
     Route: 065
     Dates: start: 20240812

REACTIONS (12)
  - Cervical spinal stenosis [Unknown]
  - Multiple sclerosis [Unknown]
  - Muscular weakness [Unknown]
  - Glycosylated haemoglobin increased [Unknown]
  - Abdominal discomfort [Unknown]
  - Diarrhoea [Unknown]
  - Gait disturbance [Unknown]
  - Fatigue [Unknown]
  - Road traffic accident [Unknown]
  - Depressed mood [Unknown]
  - Drug effect less than expected [Unknown]
  - Feeling hot [Unknown]

NARRATIVE: CASE EVENT DATE: 20240812
